FAERS Safety Report 7516880-7 (Version None)
Quarter: 2011Q2

REPORT INFORMATION
  Report Type: 
  Country: None (occurrence: None)
  Receive Date: 20110601
  Receipt Date: 20110523
  Transmission Date: 20111010
  Serious: Yes (Other)
  Sender: FDA-Public Use
  Company Number: GB-ABBOTT-11P-167-0728804-00

PATIENT
  Age: 48 Year
  Sex: Male

DRUGS (5)
  1. ATORVASTATIN [Interacting]
     Indication: PRODUCT USED FOR UNKNOWN INDICATION
  2. FENOFIBRATE [Suspect]
     Indication: LIPIDS ABNORMAL
  3. ROSIGLITAZONE [Interacting]
     Indication: PRODUCT USED FOR UNKNOWN INDICATION
  4. METFORMIN HCL [Concomitant]
     Indication: PRODUCT USED FOR UNKNOWN INDICATION
  5. NICOTINIC ACID [Interacting]
     Indication: LIPIDS ABNORMAL

REACTIONS (2)
  - HIGH DENSITY LIPOPROTEIN DECREASED [None]
  - DRUG INTERACTION [None]
